FAERS Safety Report 12746765 (Version 1)
Quarter: 2016Q3

REPORT INFORMATION
  Report Type: Spontaneous
  Country: US (occurrence: US)
  Receive Date: 20160915
  Receipt Date: 20160915
  Transmission Date: 20161109
  Serious: No
  Sender: FDA-Public Use
  Company Number: US-ASTELLAS-2015US032193

PATIENT
  Sex: Male

DRUGS (3)
  1. XTANDI [Suspect]
     Active Substance: ENZALUTAMIDE
     Dosage: 160 MG (40 MG X 4 CAPSULES), ONCE DAILY
     Route: 048
     Dates: start: 20150903
  2. LUPRON [Concomitant]
     Active Substance: LEUPROLIDE ACETATE
     Indication: PRODUCT USED FOR UNKNOWN INDICATION
     Dosage: UNK UNK, UNKNOWN FREQ.
     Route: 065
  3. XTANDI [Suspect]
     Active Substance: ENZALUTAMIDE
     Indication: PROSTATE CANCER
     Route: 065
     Dates: start: 201506

REACTIONS (15)
  - Constipation [Unknown]
  - Paranasal sinus discomfort [Unknown]
  - Hyperhidrosis [Unknown]
  - Headache [Unknown]
  - Alopecia [Unknown]
  - Blood urine present [Unknown]
  - Dizziness [Unknown]
  - Nasal congestion [Unknown]
  - Muscle spasms [Unknown]
  - Hot flush [Unknown]
  - Lip dry [Unknown]
  - Chills [Unknown]
  - Dry skin [Unknown]
  - Feeling cold [Unknown]
  - Underdose [Unknown]
